FAERS Safety Report 16880270 (Version 1)
Quarter: 2019Q4

REPORT INFORMATION
  Report Type: Spontaneous
  Country: ES (occurrence: ES)
  Receive Date: 20191003
  Receipt Date: 20191003
  Transmission Date: 20200122
  Serious: Yes (Hospitalization)
  Sender: FDA-Public Use
  Company Number: ES-MYLANLABS-2019M1091266

PATIENT
  Age: 64 Year
  Sex: Male

DRUGS (2)
  1. GEMCITABINE. [Suspect]
     Active Substance: GEMCITABINE
     Indication: PRODUCT USED FOR UNKNOWN INDICATION
     Dosage: 1650 MILLIGRAM, CYCLE
     Route: 042
     Dates: start: 20170703, end: 20171030
  2. CISPLATINO [Suspect]
     Active Substance: CISPLATIN
     Indication: PRODUCT USED FOR UNKNOWN INDICATION
     Dosage: 123 MILLIGRAM, CYCLE (123 MG (6 CICLO))
     Route: 042
     Dates: start: 20170703, end: 20171030

REACTIONS (1)
  - Acute kidney injury [Recovered/Resolved]

NARRATIVE: CASE EVENT DATE: 20171104
